FAERS Safety Report 15255943 (Version 1)
Quarter: 2018Q3

REPORT INFORMATION
  Report Type: Spontaneous
  Country: US (occurrence: US)
  Receive Date: 20180718
  Receipt Date: 20180718
  Transmission Date: 20181010
  Serious: No
  Sender: FDA-Public Use
  Company Number: None

PATIENT
  Age: 36 Year
  Sex: Male
  Weight: 92.25 kg

DRUGS (2)
  1. VALTREX [Concomitant]
     Active Substance: VALACYCLOVIR HYDROCHLORIDE
  2. LISINOPRIL. [Suspect]
     Active Substance: LISINOPRIL
     Indication: HYPERTENSION
     Dosage: ?          QUANTITY:1 TABLET(S);?
     Route: 048
     Dates: start: 20171010, end: 20180713

REACTIONS (18)
  - Confusional state [None]
  - Irritability [None]
  - Paraesthesia [None]
  - Loss of personal independence in daily activities [None]
  - Disturbance in attention [None]
  - Hypoaesthesia [None]
  - Myalgia [None]
  - Chest discomfort [None]
  - Migraine [None]
  - Fatigue [None]
  - Lethargy [None]
  - Somnolence [None]
  - Chest pain [None]
  - Loss of libido [None]
  - Dizziness [None]
  - Vision blurred [None]
  - Visual impairment [None]
  - Salt craving [None]

NARRATIVE: CASE EVENT DATE: 20180718
